FAERS Safety Report 4517544-4 (Version None)
Quarter: 2004Q4

REPORT INFORMATION
  Report Type: 
  Country: None (occurrence: None)
  Receive Date: 20041130
  Receipt Date: 20041117
  Transmission Date: 20050328
  Serious: Yes (Hospitalization)
  Sender: FDA-Public Use
  Company Number: 2004AP05903

PATIENT
  Age: 57 Year
  Sex: Female
  Weight: 62 kg

DRUGS (4)
  1. IRESSA [Suspect]
     Indication: LUNG NEOPLASM MALIGNANT
     Dosage: 250 MG DAILY PO
     Route: 048
     Dates: start: 20030130
  2. VITAMIN B COMPLEX CAP [Concomitant]
  3. FERROUS SULFATE TAB [Concomitant]
  4. TAXOL [Concomitant]

REACTIONS (10)
  - AMNESIA [None]
  - ANOREXIA [None]
  - BRAIN OEDEMA [None]
  - COGNITIVE DISORDER [None]
  - CONFUSIONAL STATE [None]
  - DRY SKIN [None]
  - METASTASES TO CENTRAL NERVOUS SYSTEM [None]
  - SKIN DESQUAMATION [None]
  - SKIN HYPERPIGMENTATION [None]
  - VOMITING [None]
